FAERS Safety Report 8262681-4 (Version None)
Quarter: 2012Q1

REPORT INFORMATION
  Report Type: 
  Country: None (occurrence: None)
  Receive Date: 20120327
  Receipt Date: 20080916
  Transmission Date: 20120608
  Serious: Yes (Other)
  Sender: FDA-Public Use
  Company Number: PHEH2003US06994

PATIENT
  Age: 45 Year
  Sex: Female

DRUGS (4)
  1. ATIVAN [Concomitant]
  2. GLEEVEC [Suspect]
     Indication: ACUTE LYMPHOCYTIC LEUKAEMIA
     Dosage: 100 MG, 4 TIMES PER DAY, ORAL ; 100 MG, 4 TIMES PER DAY, ORAL
     Route: 048
     Dates: start: 20010704
  3. GLEEVEC [Suspect]
     Indication: ACUTE LYMPHOCYTIC LEUKAEMIA
     Dosage: 100 MG, 4 TIMES PER DAY, ORAL ; 100 MG, 4 TIMES PER DAY, ORAL
     Route: 048
     Dates: start: 20070201
  4. CLIMARA [Concomitant]

REACTIONS (3)
  - CARDIAC FAILURE [None]
  - ALOPECIA [None]
  - BONE PAIN [None]
